FAERS Safety Report 4357558-0 (Version None)
Quarter: 2004Q2

REPORT INFORMATION
  Report Type: 
  Country: None (occurrence: None)
  Receive Date: 20040510
  Receipt Date: 20040426
  Transmission Date: 20050107
  Serious: Yes (Disabling, Other)
  Sender: FDA-Public Use
  Company Number: 236530

PATIENT
  Age: 62 Year
  Sex: Female
  Weight: 85 kg

DRUGS (4)
  1. KLIOVANCE (ESTRADIOL  HEMIHYDRATE, NORETHISTERONE ACETATE) FILM-COATED [Suspect]
     Indication: ILL-DEFINED DISORDER
     Dates: start: 20030312, end: 20031204
  2. CO-PROXAMOL (DEXTROPROPOXYPHENE HYDROCHLORIDE, PARACETAMOL) [Concomitant]
  3. FYBOGEL (ISPAGHULA) [Concomitant]
  4. FELDENE [Concomitant]

REACTIONS (1)
  - CEREBROVASCULAR ACCIDENT [None]
